FAERS Safety Report 4442875-6 (Version None)
Quarter: 2004Q3

REPORT INFORMATION
  Report Type: 
  Country: None (occurrence: None)
  Receive Date: 20040907
  Receipt Date: 20040907
  Transmission Date: 20050211
  Serious: Yes (Other)
  Sender: FDA-Public Use
  Company Number: None

PATIENT
  Age: 58 Year
  Sex: Male
  Weight: 94.3482 kg

DRUGS (1)
  1. TRAVATAN [Suspect]
     Dosage: 1 GTT OU QHS
     Route: 047
     Dates: start: 20040309, end: 20040616

REACTIONS (3)
  - KERATITIS [None]
  - KERATOCONJUNCTIVITIS SICCA [None]
  - PHARMACEUTICAL PRODUCT COMPLAINT [None]
